FAERS Safety Report 23118732 (Version 1)
Quarter: 2023Q4

REPORT INFORMATION
  Report Type: Report from Study
  Country: IT (occurrence: IT)
  Receive Date: 20231028
  Receipt Date: 20231028
  Transmission Date: 20240110
  Serious: Yes (Other)
  Sender: FDA-Public Use
  Company Number: None

PATIENT
  Age: 42 Year
  Sex: Male

DRUGS (2)
  1. MYFENAX [Suspect]
     Active Substance: MYCOPHENOLATE MOFETIL
     Indication: Renal and pancreas transplant
     Dosage: 1000 MILLIGRAM DAILY; MYFERNAX 500 MG 2 TABLETS/DAY
     Dates: start: 20191010, end: 20191230
  2. PROGRAF [Concomitant]
     Active Substance: TACROLIMUS
     Indication: Renal and pancreas transplant
     Dates: start: 200501

REACTIONS (3)
  - Heart rate abnormal [Recovered/Resolved]
  - Vomiting [Recovered/Resolved]
  - Dizziness [Recovered/Resolved]

NARRATIVE: CASE EVENT DATE: 20191201
